FAERS Safety Report 15927764 (Version 2)
Quarter: 2019Q3

REPORT INFORMATION
  Report Type: Spontaneous
  Country: US (occurrence: US)
  Receive Date: 20190206
  Receipt Date: 20190917
  Transmission Date: 20191004
  Serious: Yes (Hospitalization)
  Sender: FDA-Public Use
  Company Number: US-JNJFOC-20190203976

PATIENT
  Age: 52 Year
  Sex: Male

DRUGS (1)
  1. INVOKANA [Suspect]
     Active Substance: CANAGLIFLOZIN
     Indication: TYPE 2 DIABETES MELLITUS
     Route: 048
     Dates: start: 20140916

REACTIONS (8)
  - Streptococcal sepsis [Recovering/Resolving]
  - Diabetic foot infection [Recovered/Resolved]
  - Toe amputation [Unknown]
  - Metatarsal excision [Unknown]
  - Gangrene [Recovering/Resolving]
  - Diabetic foot [Unknown]
  - Osteomyelitis [Unknown]
  - Diabetic ketoacidosis [Recovered/Resolved]

NARRATIVE: CASE EVENT DATE: 20151207
